FAERS Safety Report 8430490-9 (Version None)
Quarter: 2012Q2

REPORT INFORMATION
  Report Type: 
  Country: None (occurrence: None)
  Receive Date: 20120606
  Receipt Date: 20120606
  Transmission Date: 20120825
  Serious: No
  Sender: FDA-Public Use
  Company Number: None

PATIENT
  Age: 62 Year
  Sex: Male
  Weight: 104.8 kg

DRUGS (1)
  1. TOPOTECAN [Suspect]
     Dosage: 7.2 MG QWEEK IV
     Route: 042
     Dates: start: 20111110, end: 20111229

REACTIONS (1)
  - PYREXIA [None]
